FAERS Safety Report 9642113 (Version 8)
Quarter: 2018Q3

REPORT INFORMATION
  Report Type: Report from Study
  Country: DE (occurrence: DE)
  Receive Date: 20131023
  Receipt Date: 20180705
  Transmission Date: 20181010
  Serious: Yes (Hospitalization)
  Sender: FDA-Public Use
  Company Number: DE-ROCHE-1292470

PATIENT
  Age: 65 Year
  Sex: Male
  Weight: 104 kg

DRUGS (25)
  1. AMARYL [Concomitant]
     Active Substance: GLIMEPIRIDE
     Route: 065
  2. PANTENOL [Concomitant]
     Route: 065
  3. PANTOZOL [Concomitant]
     Active Substance: PANTOPRAZOLE SODIUM
     Route: 065
  4. INSULIN [Concomitant]
     Active Substance: INSULIN NOS
  5. TEPILTA SUSPENSION [Concomitant]
     Route: 065
  6. GLIBENCLAMID [Concomitant]
     Active Substance: GLYBURIDE
     Indication: DIABETES MELLITUS
     Route: 048
  7. LEVEMIR [Concomitant]
     Active Substance: INSULIN DETEMIR
     Route: 058
  8. FUROSEMID [Concomitant]
     Active Substance: FUROSEMIDE
     Route: 065
  9. TOREM [Concomitant]
     Active Substance: TORSEMIDE
     Dosage: 0.5 DF TWICE A DAY
     Route: 065
  10. BELOC?ZOK [Concomitant]
     Active Substance: METOPROLOL SUCCINATE
     Indication: HYPERTENSION
     Route: 048
     Dates: start: 20130919
  11. PANTENOL [Concomitant]
     Dosage: MOUTHWASH
     Route: 065
  12. METOHEXAL [Concomitant]
     Active Substance: METOPROLOL SUCCINATE
     Route: 065
  13. ASPIRIN. [Concomitant]
     Active Substance: ASPIRIN
     Route: 065
  14. VICTOZA [Concomitant]
     Active Substance: LIRAGLUTIDE
     Route: 058
  15. INNOHEP [Concomitant]
     Active Substance: TINZAPARIN SODIUM
     Route: 058
  16. SPIRONOLACTON [Concomitant]
     Active Substance: SPIRONOLACTONE
     Route: 065
  17. LEVEMIR [Concomitant]
     Active Substance: INSULIN DETEMIR
     Route: 058
  18. PANTOZOL [Concomitant]
     Active Substance: PANTOPRAZOLE SODIUM
     Route: 042
  19. BEVACIZUMAB. [Suspect]
     Active Substance: BEVACIZUMAB
     Indication: COLORECTAL CANCER METASTATIC
     Dosage: LAST DOSE PRIOR TO THE EVENT WAS GIVEN ON 10?OCT?2013
     Route: 042
     Dates: start: 20130919, end: 20131010
  20. XELODA [Suspect]
     Active Substance: CAPECITABINE
     Indication: COLORECTAL CANCER METASTATIC
     Dosage: 3300 TO 2500 MG
     Route: 048
     Dates: start: 20130919, end: 20131003
  21. IRINOTECAN [Suspect]
     Active Substance: IRINOTECAN
     Indication: COLORECTAL CANCER METASTATIC
     Route: 042
     Dates: start: 20130919, end: 20131010
  22. RAMIPRIL. [Concomitant]
     Active Substance: RAMIPRIL
     Indication: HYPERTENSION
     Route: 048
     Dates: start: 20130919
  23. TEPILTA SUSPENSION [Concomitant]
     Route: 065
  24. DIGITOXIN [Concomitant]
     Active Substance: DIGITOXIN
     Route: 065
  25. FENTANYL. [Concomitant]
     Active Substance: FENTANYL
     Dosage: PATCH
     Route: 065

REACTIONS (6)
  - Pancytopenia [Recovered/Resolved]
  - Stomatitis [Recovered/Resolved]
  - Acute kidney injury [Recovered/Resolved]
  - Hyperkalaemia [Recovered/Resolved]
  - Dysphagia [Recovered/Resolved]
  - General physical health deterioration [Recovered/Resolved]

NARRATIVE: CASE EVENT DATE: 20131017
